FAERS Safety Report 10525139 (Version 2)
Quarter: 2015Q2

REPORT INFORMATION
  Report Type: Spontaneous
  Country: NL (occurrence: None)
  Receive Date: 20141015
  Receipt Date: 20150414
  Transmission Date: 20150821
  Serious: Yes (Death, Hospitalization)
  Sender: FDA-Public Use
  Company Number: NL-H14001-14-01020

PATIENT
  Age: 77 Year
  Sex: Male

DRUGS (5)
  1. AMOXICILLIN (AMOXICILLIN) [Suspect]
     Active Substance: AMOXICILLIN
     Indication: BRAIN ABSCESS
     Dosage: 1 IN 24
     Route: 048
  2. PENICILLIN (BENZYLPENICILLIN) [Suspect]
     Active Substance: PENICILLIN G
     Indication: BRAIN ABSCESS
     Dosage: (2 GM, 2 IN 1 D)
     Route: 042
  3. CLARITHROMYCIN (CLARITHROMYCIN) [Suspect]
     Active Substance: CLARITHROMYCIN
     Indication: BRAIN ABSCESS
     Dosage: (2 GM, 6 IN 1 D)
     Route: 048
  4. CEFTRIAXONE (CEFTRIAXONE) [Suspect]
     Active Substance: CEFTRIAXONE
     Indication: BRAIN ABSCESS
     Dosage: (250 MG, 2 IN 1 D
     Route: 042
  5. METRONIDAZOLE (METRONIDAZOLE) [Suspect]
     Active Substance: METRONIDAZOLE
     Indication: BRAIN ABSCESS
     Dosage: (500 MG, 3 IN 1)

REACTIONS (18)
  - Diffuse alveolar damage [None]
  - Organ failure [None]
  - Autoimmune hepatitis [None]
  - Shock [None]
  - Drug reaction with eosinophilia and systemic symptoms [None]
  - Haemoglobin decreased [None]
  - Acute kidney injury [None]
  - Ischaemia [None]
  - Toxicity to various agents [None]
  - Brain abscess [None]
  - Haemodynamic instability [None]
  - Acute hepatic failure [None]
  - Cell death [None]
  - Streptococcal abscess [None]
  - Disorientation [None]
  - Infection [None]
  - Continuous haemodiafiltration [None]
  - Respiratory failure [None]
